FAERS Safety Report 8861329 (Version 1)
Quarter: 2012Q4

REPORT INFORMATION
  Report Type: 
  Country: US (occurrence: US)
  Receive Date: 20121026
  Receipt Date: 20121026
  Transmission Date: 20130627
  Serious: No
  Sender: FDA-Public Use
  Company Number: US-PFIZER INC-2012265790

PATIENT
  Sex: Female

DRUGS (8)
  1. CELEBREX [Suspect]
     Indication: OSTEOARTHRITIS
     Dosage: 200 mg, 1x/day
     Route: 048
     Dates: start: 2009, end: 20120929
  2. MOBIC [Suspect]
     Indication: PAIN
     Dosage: UNK
     Dates: start: 2012
  3. LEVOTHYROXINE [Concomitant]
     Indication: HYPOTHYROIDISM
     Dosage: UNK
  4. GLIPIZIDE [Concomitant]
     Indication: DIABETES MELLITUS
     Dosage: 10 mg, UNK
  5. ATORVASTATIN [Concomitant]
     Dosage: 20 mg, UNK
  6. LISINOPRIL [Concomitant]
     Dosage: 2.5 mg, UNK
  7. METFORMIN [Concomitant]
     Dosage: 1000 mg, 2x/day
  8. MELOXICAM [Concomitant]
     Dosage: UNK

REACTIONS (2)
  - Pain [Not Recovered/Not Resolved]
  - Insomnia [Not Recovered/Not Resolved]
